FAERS Safety Report 11929349 (Version 1)
Quarter: 2016Q1

REPORT INFORMATION
  Report Type: Spontaneous
  Country: US (occurrence: None)
  Receive Date: 20160119
  Receipt Date: 20160119
  Transmission Date: 20160526
  Serious: Yes (Disabling)
  Sender: FDA-Public Use
  Company Number: None

PATIENT
  Age: 73 Year
  Sex: Female
  Weight: 52.16 kg

DRUGS (13)
  1. FOLIC ACID. [Concomitant]
     Active Substance: FOLIC ACID
  2. PROLIA [Suspect]
     Active Substance: DENOSUMAB
     Indication: OSTEOPOROSIS
     Dosage: ONE SHOT ONCE EVERY SIX MON GIVEN INTO/UNDER THE SKIN
     Dates: start: 20150727, end: 20150727
  3. XGEVA [Suspect]
     Active Substance: DENOSUMAB
  4. LAMICTAL [Concomitant]
     Active Substance: LAMOTRIGINE
  5. HYDROXYZINE [Concomitant]
     Active Substance: HYDROXYZINE\HYDROXYZINE HYDROCHLORIDE
  6. OMEPRAZOLE. [Concomitant]
     Active Substance: OMEPRAZOLE
  7. OMEGA THREE [Concomitant]
  8. FLUTICASONE [Concomitant]
     Active Substance: FLUTICASONE\FLUTICASONE PROPIONATE
  9. GABAPENTIN. [Concomitant]
     Active Substance: GABAPENTIN
  10. VITAMIN D [Concomitant]
     Active Substance: CHOLECALCIFEROL
  11. CLOTIMAZOLE [Concomitant]
  12. ONDANSETRON [Concomitant]
     Active Substance: ONDANSETRON
  13. MAGNESIUM OXIDE. [Concomitant]
     Active Substance: MAGNESIUM OXIDE

REACTIONS (9)
  - Pruritus generalised [None]
  - Ear pruritus [None]
  - Dizziness [None]
  - Balance disorder [None]
  - Vulvovaginal pruritus [None]
  - Syncope [None]
  - Eye pruritus [None]
  - Pruritus [None]
  - Anal pruritus [None]

NARRATIVE: CASE EVENT DATE: 20150727
